FAERS Safety Report 7399899-9 (Version None)
Quarter: 2011Q2

REPORT INFORMATION
  Report Type: 
  Country: None (occurrence: None)
  Receive Date: 20110407
  Receipt Date: 20110329
  Transmission Date: 20111010
  Serious: Yes (Death, Hospitalization)
  Sender: FDA-Public Use
  Company Number: FR-SANOFI-AVENTIS-2010SA059482

PATIENT
  Age: 86 Year
  Sex: Female

DRUGS (9)
  1. LASIX [Suspect]
     Route: 048
     Dates: end: 20100901
  2. DAFLON [Concomitant]
     Route: 048
  3. VEINAMITOL [Concomitant]
     Route: 065
  4. FENOFIBRATE [Concomitant]
     Route: 048
  5. NITRODERM [Concomitant]
     Route: 003
  6. SPASFON [Concomitant]
     Route: 065
  7. HYTACAND [Suspect]
     Route: 048
     Dates: end: 20100827
  8. KALEORID [Concomitant]
     Route: 048
  9. KARDEGIC [Concomitant]
     Indication: THROMBOSIS PROPHYLAXIS
     Route: 048

REACTIONS (2)
  - HYPOVOLAEMIC SHOCK [None]
  - SHOCK [None]
